FAERS Safety Report 23680195 (Version 2)
Quarter: 2024Q2

REPORT INFORMATION
  Report Type: Spontaneous
  Country: FR (occurrence: FR)
  Receive Date: 20240327
  Receipt Date: 20240411
  Transmission Date: 20240715
  Serious: Yes (Other)
  Sender: FDA-Public Use
  Company Number: FR-Eisai-EC-2024-162195

PATIENT
  Age: 70 Year
  Sex: Male

DRUGS (2)
  1. LENVATINIB [Suspect]
     Active Substance: LENVATINIB
     Indication: Metastatic renal cell carcinoma
     Route: 048
     Dates: start: 202305
  2. KEYTRUDA [Suspect]
     Active Substance: PEMBROLIZUMAB
     Indication: Metastatic renal cell carcinoma
     Route: 041
     Dates: start: 202305

REACTIONS (11)
  - Adrenal insufficiency [Unknown]
  - Hypothyroidism [Unknown]
  - Hypertension [Unknown]
  - Ejection fraction decreased [Unknown]
  - Creatinine renal clearance decreased [Unknown]
  - Fatigue [Unknown]
  - Diarrhoea [Unknown]
  - Weight decreased [Unknown]
  - Inflammation [Unknown]
  - Hypercatabolism [Unknown]
  - Abdominal pain upper [Unknown]
